APPROVED DRUG PRODUCT: MIDOSTAURIN
Active Ingredient: MIDOSTAURIN
Strength: 25MG
Dosage Form/Route: CAPSULE;ORAL
Application: A216076 | Product #001
Applicant: TEVA PHARMACEUTICALS DEVELOPMENT INC
Approved: Apr 29, 2024 | RLD: No | RS: No | Type: DISCN